FAERS Safety Report 13884487 (Version 1)
Quarter: 2017Q3

REPORT INFORMATION
  Report Type: Spontaneous
  Country: US (occurrence: US)
  Receive Date: 20170821
  Receipt Date: 20170821
  Transmission Date: 20171127
  Serious: No
  Sender: FDA-Public Use
  Company Number: US-TEVA-792985USA

PATIENT
  Sex: Female

DRUGS (1)
  1. FLUOXETINE [Suspect]
     Active Substance: FLUOXETINE HYDROCHLORIDE
     Indication: DEPRESSION
     Dosage: 40 MILLIGRAM DAILY;
     Route: 065

REACTIONS (5)
  - Decreased appetite [Unknown]
  - Bowel movement irregularity [Unknown]
  - Anxiety [Unknown]
  - Tremor [Unknown]
  - Insomnia [Unknown]
